FAERS Safety Report 10547389 (Version 4)
Quarter: 2015Q1

REPORT INFORMATION
  Report Type: Report from Study
  Country: RU (occurrence: RU)
  Receive Date: 20141028
  Receipt Date: 20150122
  Transmission Date: 20150720
  Serious: Yes (Death, Life-Threatening, Hospitalization, Other)
  Sender: FDA-Public Use
  Company Number: RU-ACTELION-A-CH2014-104022

PATIENT
  Age: 73 Year
  Sex: Female
  Weight: 90 kg

DRUGS (5)
  1. SPIRONOLACTONE. [Concomitant]
     Active Substance: SPIRONOLACTONE
     Dosage: UNK
     Route: 048
     Dates: start: 20080216
  2. FENULES [Concomitant]
     Dosage: UNK
     Route: 048
     Dates: start: 20091014
  3. SILDENAFIL. [Concomitant]
     Active Substance: SILDENAFIL
     Dosage: UNK
     Route: 048
     Dates: start: 200802
  4. MACITENTAN [Suspect]
     Active Substance: MACITENTAN
     Indication: PULMONARY ARTERIAL HYPERTENSION
     Dosage: 10 MG, QD
     Route: 048
     Dates: start: 20091013, end: 20140823
  5. FUROSEMIDE. [Concomitant]
     Active Substance: FUROSEMIDE
     Dosage: UNK
     Route: 048
     Dates: start: 20091028

REACTIONS (16)
  - Asthenia [Fatal]
  - Ascites [Fatal]
  - Cardiac failure congestive [Fatal]
  - Atrial flutter [Fatal]
  - Pulmonary arterial hypertension [Fatal]
  - Dyspnoea [Fatal]
  - Hepatomegaly [Fatal]
  - Multi-organ failure [Fatal]
  - Blood creatinine increased [Fatal]
  - Oedema peripheral [Fatal]
  - Localised oedema [Fatal]
  - Blood bilirubin increased [Fatal]
  - Condition aggravated [Fatal]
  - Pneumonia [Recovered/Resolved with Sequelae]
  - Haemoglobin decreased [Unknown]
  - Hypotension [Fatal]

NARRATIVE: CASE EVENT DATE: 20140715
